FAERS Safety Report 16785782 (Version 1)
Quarter: 2019Q3

REPORT INFORMATION
  Report Type: Spontaneous
  Country: GB (occurrence: AT)
  Receive Date: 20190909
  Receipt Date: 20190909
  Transmission Date: 20191005
  Serious: Yes (Hospitalization)
  Sender: FDA-Public Use
  Company Number: AT-BAYER-2019-092981

PATIENT
  Age: 72 Year
  Sex: Male
  Weight: 76 kg

DRUGS (59)
  1. REPARIL-GEL [DIETHYLAMINE SALICYLATE;ESCIN] [Concomitant]
  2. RHINOSPRAY [Concomitant]
     Active Substance: TRAMAZOLINE HYDROCHLORIDE
  3. HERBAL NOS [Concomitant]
     Active Substance: HERBALS
  4. POLSTIMOL [Concomitant]
  5. DICLOFENAC SODIUM. [Concomitant]
     Active Substance: DICLOFENAC SODIUM
  6. LIDOCAIN [LIDOCAINE] [Concomitant]
  7. NAPROXEN. [Concomitant]
     Active Substance: NAPROXEN
     Dosage: 500 MG, BID
  8. PROSTA URGENIN [Concomitant]
     Active Substance: SERENOA REPENS WHOLE
  9. VESICARE [Concomitant]
     Active Substance: SOLIFENACIN SUCCINATE
     Dosage: 5 MG
  10. HADENSA [Concomitant]
  11. ADVANTAN [Concomitant]
     Active Substance: METHYLPREDNISOLONE ACEPONATE
  12. AGAFFIN [Concomitant]
  13. CIPROFLOXACIN MONOHYDROCHLORIDE [Suspect]
     Active Substance: CIPROFLOXACIN
     Dosage: 2 X 500MG ABOUT 40-50 TIMES
     Route: 048
  14. TRITTICO [Concomitant]
     Active Substance: TRAZODONE HYDROCHLORIDE
  15. NOVALGIN (METAMIZOLE SODIUM) [Concomitant]
     Active Substance: METAMIZOLE SODIUM
  16. NEUROBION [CYANOCOBALAMIN;PYRIDOXINE HYDROCHLORIDE;THIAMINE DISULF [Concomitant]
  17. HERBAL NOS [Concomitant]
     Active Substance: HERBALS
  18. AMPHO-MORONAL [Concomitant]
     Active Substance: AMPHOTERICIN B
  19. HYDAL [Concomitant]
     Active Substance: HYDROMORPHONE HYDROCHLORIDE
  20. APREDNISLON [Concomitant]
     Active Substance: PREDNISOLONE
     Dosage: 25 MG, UNK
     Route: 048
  21. EZETIMIBE. [Concomitant]
     Active Substance: EZETIMIBE
     Dosage: 10 MG
  22. HALCION [Concomitant]
     Active Substance: TRIAZOLAM
  23. CRESTON [Concomitant]
     Active Substance: ROSUVASTATIN CALCIUM
     Indication: CEREBRAL INFARCTION
     Dosage: 20 MG, QD
     Route: 048
     Dates: start: 20141101, end: 20181006
  24. FINASTERID [Concomitant]
     Active Substance: FINASTERIDE
  25. LYRICA [Concomitant]
     Active Substance: PREGABALIN
  26. LEXOTANIL [Concomitant]
     Active Substance: BROMAZEPAM
  27. URIVESC [Concomitant]
     Active Substance: TROSPIUM CHLORIDE
  28. SEROQUEL [Concomitant]
     Active Substance: QUETIAPINE FUMARATE
  29. URALYT [ARNICA MONTANA EXTRACT;CONVALLARIA MAJALIS EXTRACT;ECHINAC [Concomitant]
  30. CIPROXIN 500 MG [Suspect]
     Active Substance: CIPROFLOXACIN
     Indication: URETHRITIS
     Dosage: 500 MG, BID
     Route: 048
  31. CRESTON [Concomitant]
     Active Substance: ROSUVASTATIN CALCIUM
     Indication: CEREBRAL INFARCTION
     Dosage: 10 MG, QD
  32. COLECALCIFEROL [Concomitant]
     Active Substance: CHOLECALCIFEROL
  33. HYDAL [Concomitant]
     Active Substance: HYDROMORPHONE HYDROCHLORIDE
     Dosage: 2 MG
  34. MOVICOL [MACROGOL;POTASSIUM CHLORIDE;SODIUM BICARBONATE;SODIUM CHL [Concomitant]
  35. MEXALEN [Concomitant]
     Active Substance: ACETAMINOPHEN
     Dosage: 500 MG
  36. ENALAPRIL [Concomitant]
     Active Substance: ENALAPRIL
  37. FOLSAN [Concomitant]
     Active Substance: FOLIC ACID
     Dosage: 5 MG
  38. PSYCHOPAX [Concomitant]
     Active Substance: DIAZEPAM
  39. TARGIN [Concomitant]
     Active Substance: NALOXONE HYDROCHLORIDE\OXYCODONE HYDROCHLORIDE
  40. ARTERGIN [Concomitant]
  41. COENZYM Q10 [Concomitant]
  42. VIBRAMYCIN [Concomitant]
     Active Substance: DOXYCYCLINE
     Dosage: DAILY DOSE 400 MG
     Dates: start: 20170619
  43. RENITEC PLUS [Concomitant]
     Dosage: 20 MG
  44. MAGNESIUM [Concomitant]
     Active Substance: MAGNESIUM
  45. FLUCONAZOL [Concomitant]
     Active Substance: FLUCONAZOLE
  46. MARCUMAR [Concomitant]
     Active Substance: PHENPROCOUMON
  47. DULOXETIN KRKA [Concomitant]
     Dosage: 30 MG
  48. OMEGA 3 [DOCOSAHEXAENOIC ACID;EICOSAPENTAENOIC ACID] [Concomitant]
  49. XANOR [Concomitant]
     Active Substance: ALPRAZOLAM
  50. SCHERIPROCT [CINCHOCAINE HYDROCHLORIDE;CLEMIZOLE UNDECYLENATE;HEXA [Concomitant]
  51. CIPROXIN 500 MG [Suspect]
     Active Substance: CIPROFLOXACIN
     Indication: URETHRITIS
     Dosage: 500 MG, BID
     Route: 048
     Dates: start: 20170825
  52. FURADANTIN [Concomitant]
     Active Substance: NITROFURANTOIN
  53. SEROXAT [Concomitant]
     Active Substance: PAROXETINE HYDROCHLORIDE
  54. UROMONT [Concomitant]
  55. XYLOCAIN [LIDOCAINE HYDROCHLORIDE] [Concomitant]
  56. AUGMENTIN [Concomitant]
     Active Substance: AMOXICILLIN\CLAVULANATE POTASSIUM
  57. CYMBALTA [Concomitant]
     Active Substance: DULOXETINE HYDROCHLORIDE
  58. TRAMAL [Concomitant]
     Active Substance: TRAMADOL
     Dosage: 50 MG
  59. OLEOVIT [BENZALKONIUM CHLORIDE;DEXPANTHENOL;RETINOL PALMITATE] [Concomitant]

REACTIONS (5)
  - Enthesopathy [Not Recovered/Not Resolved]
  - Myopathy [Not Recovered/Not Resolved]
  - Adverse event [Recovered/Resolved with Sequelae]
  - Tendon pain [Recovered/Resolved with Sequelae]
  - Myalgia [Recovered/Resolved with Sequelae]

NARRATIVE: CASE EVENT DATE: 2017
